FAERS Safety Report 14094564 (Version 1)
Quarter: 2017Q4

REPORT INFORMATION
  Report Type: Spontaneous
  Country: US (occurrence: US)
  Receive Date: 20171016
  Receipt Date: 20171016
  Transmission Date: 20180321
  Serious: No
  Sender: FDA-Public Use
  Company Number: US-AMGEN-USASP2017043651

PATIENT
  Age: 81 Year
  Sex: Female

DRUGS (1)
  1. PROLIA [Suspect]
     Active Substance: DENOSUMAB
     Indication: BONE LOSS
     Dosage: 60 MG, Q6MO
     Route: 065
     Dates: start: 2015, end: 2016

REACTIONS (8)
  - Pain in jaw [Unknown]
  - Gingival erythema [Unknown]
  - Noninfective gingivitis [Unknown]
  - Oral disorder [Unknown]
  - Gingival pain [Unknown]
  - Tooth disorder [Unknown]
  - Gingival disorder [Unknown]
  - Off label use [Unknown]

NARRATIVE: CASE EVENT DATE: 2015
